FAERS Safety Report 8777226 (Version 2)
Quarter: 2014Q1

REPORT INFORMATION
  Report Type: Report from Study
  Country: JP (occurrence: JP)
  Receive Date: 20120911
  Receipt Date: 20140221
  Transmission Date: 20141002
  Serious: Yes (Death, Hospitalization, Disabling)
  Sender: FDA-Public Use
  Company Number: JP-AMGEN-JPNCT2012056910

PATIENT
  Age: 87 Year
  Sex: Male
  Weight: 52 kg

DRUGS (11)
  1. DARBEPOETIN ALFA [Suspect]
     Indication: NEPHROGENIC ANAEMIA
     Dosage: 60 MUG, QD
     Route: 058
     Dates: start: 20110825
  2. LASIX [Concomitant]
     Dosage: UNK
     Route: 048
  3. HALFDIGOXIN [Concomitant]
     Dosage: UNK
     Route: 048
  4. CONIEL [Concomitant]
     Dosage: UNK
     Route: 048
  5. BLOPRESS [Concomitant]
     Dosage: UNK
     Route: 048
  6. ZYLORIC [Concomitant]
     Dosage: UNK
     Route: 048
  7. KALIMATE [Concomitant]
     Dosage: UNK
     Route: 048
  8. MAGMITT [Concomitant]
     Dosage: UNK
     Route: 048
  9. PURSENNID [Concomitant]
     Dosage: UNK
     Route: 048
  10. ARTIST [Concomitant]
     Dosage: UNK
     Route: 048
  11. WARFARIN [Concomitant]
     Dosage: UNK
     Route: 048

REACTIONS (2)
  - Sick sinus syndrome [Recovered/Resolved]
  - Cardiac failure acute [Fatal]
